FAERS Safety Report 10377709 (Version 1)
Quarter: 2014Q3

REPORT INFORMATION
  Report Type: Spontaneous
  Country: GB (occurrence: GB)
  Receive Date: 20140812
  Receipt Date: 20140812
  Transmission Date: 20150326
  Serious: Yes (Hospitalization)
  Sender: FDA-Public Use
  Company Number: 2014SP004611

PATIENT
  Age: 19 Year
  Sex: Female

DRUGS (4)
  1. CEFALEXIN [Suspect]
     Active Substance: CEPHALEXIN
     Indication: CELLULITIS
     Route: 048
     Dates: start: 20140720
  2. CEFTRIAXONE. [Suspect]
     Active Substance: CEFTRIAXONE
     Indication: CELLULITIS
     Route: 042
     Dates: start: 20140720
  3. LANSOPRAZOLE. [Concomitant]
     Active Substance: LANSOPRAZOLE
  4. FLUCLOXACILLIN SODIUM [Suspect]
     Active Substance: FLUCLOXACILLIN
     Indication: CELLULITIS
     Route: 048
     Dates: start: 20140720

REACTIONS (5)
  - Rash papular [Recovering/Resolving]
  - Pruritus [Recovering/Resolving]
  - Rash pruritic [Recovering/Resolving]
  - Rash generalised [Recovering/Resolving]
  - Lip swelling [Recovering/Resolving]

NARRATIVE: CASE EVENT DATE: 20140721
